FAERS Safety Report 4768238-1 (Version None)
Quarter: 2005Q3

REPORT INFORMATION
  Report Type: 
  Country: None (occurrence: None)
  Receive Date: 20050914
  Receipt Date: 20050912
  Transmission Date: 20060218
  Serious: Yes (Death)
  Sender: FDA-Public Use
  Company Number: US-BRISTOL-MYERS SQUIBB COMPANY-13108725

PATIENT
  Age: 85 Year
  Sex: Female

DRUGS (1)
  1. MEGACE [Suspect]

REACTIONS (1)
  - DEATH [None]
